FAERS Safety Report 7330989 (Version 31)
Quarter: 2013Q3

REPORT INFORMATION
  Report Type: Spontaneous
  Country: US (occurrence: US)
  Receive Date: 20100325
  Receipt Date: 20130726
  Transmission Date: 20140515
  Serious: Yes (Death, Other)
  Sender: FDA-Public Use
  Company Number: PHEH2010US03123

PATIENT
  Sex: Male

DRUGS (26)
  1. ZOMETA [Suspect]
     Indication: HYPERCALCAEMIA OF MALIGNANCY
     Dosage: 4 MG, QMO
     Route: 042
     Dates: start: 2003, end: 2009
  2. ZOMETA [Suspect]
     Dosage: 4 MG,
     Dates: start: 20120808
  3. AREDIA [Suspect]
     Indication: HYPERCALCAEMIA OF MALIGNANCY
     Dosage: 90 MG, PRN
     Route: 042
  4. REVLIMID [Suspect]
     Dates: start: 200709, end: 200803
  5. DEXAMETHASONE [Concomitant]
     Dosage: 20 MG, QW
     Dates: start: 200803, end: 200809
  6. FERROUS SULFATE [Concomitant]
  7. ULTRACET [Concomitant]
  8. AVELOX [Concomitant]
     Dosage: 400 MG,
  9. HUMIBID [Concomitant]
  10. LORATAB [Concomitant]
  11. LEVAQUIN [Concomitant]
     Dosage: 500 MG,
     Route: 042
  12. ALBUTEROL [Concomitant]
  13. ASPIRIN [Concomitant]
  14. DICLOFENAC [Concomitant]
  15. PENICILLIN V POTASSIUM [Concomitant]
     Dosage: 500 MG, UNK
  16. ALLOPURINOL [Concomitant]
  17. TERAZOSIN HYDROCHLORIDE [Concomitant]
  18. CHLORHEXIDINE GLUCONATE [Concomitant]
  19. INDOMETHACIN [Concomitant]
  20. CIPROFLOXACIN [Concomitant]
     Dosage: 500 MG, UNK
  21. MORPHINE [Concomitant]
     Dosage: 30 MG, UNK
  22. WARFARIN [Concomitant]
     Dosage: 5 MG, UNK
  23. DESONIDE [Concomitant]
  24. DIFLUPREDNATE [Concomitant]
  25. VELCADE [Concomitant]
     Dates: start: 20101206
  26. GLUCOSAMINE W/CHONDROITIN [Concomitant]

REACTIONS (112)
  - Death [Fatal]
  - Cardiomegaly [Unknown]
  - Aortic disorder [Unknown]
  - Pleural effusion [Unknown]
  - Lymphadenopathy [Unknown]
  - Pneumonia [Unknown]
  - Osteonecrosis of jaw [Unknown]
  - Pain [Unknown]
  - Infection [Unknown]
  - Injury [Unknown]
  - Deformity [Unknown]
  - Emotional distress [Unknown]
  - Anxiety [Unknown]
  - Pulmonary embolism [Unknown]
  - Haemoptysis [Unknown]
  - Lung infiltration [Unknown]
  - Atelectasis [Unknown]
  - Rib fracture [Unknown]
  - Hand fracture [Unknown]
  - Intervertebral disc degeneration [Unknown]
  - Intervertebral disc protrusion [Unknown]
  - Lumbar spinal stenosis [Unknown]
  - Spinal osteoarthritis [Unknown]
  - Scoliosis [Unknown]
  - Osteosclerosis [Unknown]
  - Osteoarthritis [Unknown]
  - Osteonecrosis [Unknown]
  - Pancytopenia [Unknown]
  - Neutropenia [Unknown]
  - Anaemia [Unknown]
  - Dysplastic naevus [Unknown]
  - Monoclonal immunoglobulin present [Recovering/Resolving]
  - Neuropathy peripheral [Unknown]
  - Paraesthesia [Unknown]
  - Hypoaesthesia [Unknown]
  - Abscess limb [Unknown]
  - Gangrene [Unknown]
  - Cerebrovascular accident [Unknown]
  - Atrophy [Unknown]
  - Gout [Unknown]
  - Cellulitis [Unknown]
  - Bundle branch block right [Unknown]
  - Renal failure [Unknown]
  - Blood creatinine increased [Unknown]
  - Atrial fibrillation [Unknown]
  - Cardiac failure [Unknown]
  - Chest pain [Unknown]
  - Compression fracture [Unknown]
  - Back pain [Unknown]
  - Vascular calcification [Unknown]
  - Sepsis [Unknown]
  - Ischaemic cardiomyopathy [Unknown]
  - Deep vein thrombosis [Unknown]
  - Bursitis [Unknown]
  - Neuralgia [Unknown]
  - Radial nerve palsy [Recovering/Resolving]
  - Blindness [Unknown]
  - Spondylolisthesis [Unknown]
  - Neoplasm malignant [Unknown]
  - Leukaemia [Unknown]
  - Arteriosclerosis [Unknown]
  - Angiopathy [Unknown]
  - Prostatomegaly [Unknown]
  - Deafness [Unknown]
  - Hyperkeratosis [Unknown]
  - Gait disturbance [Unknown]
  - Pancreatic carcinoma [Unknown]
  - Tongue ulceration [Unknown]
  - Rotator cuff syndrome [Unknown]
  - Osteopenia [Unknown]
  - Acquired diaphragmatic eventration [Unknown]
  - Joint swelling [Unknown]
  - Tenderness [Unknown]
  - Laceration [Unknown]
  - Malaise [Unknown]
  - Dyspnoea [Unknown]
  - Dizziness [Unknown]
  - Constipation [Unknown]
  - Leukocytosis [Unknown]
  - Carbuncle [Unknown]
  - Furuncle [Unknown]
  - Ear disorder [Unknown]
  - Encephalopathy [Unknown]
  - Hyperlipidaemia [Unknown]
  - Ataxia [Unknown]
  - Polyneuropathy [Unknown]
  - Urinary incontinence [Unknown]
  - Metastases to bone [Unknown]
  - Ear infection [Unknown]
  - Upper respiratory tract infection [Unknown]
  - Splenomegaly [Unknown]
  - Foot deformity [Unknown]
  - Osteomyelitis [Unknown]
  - Eustachian tube dysfunction [Unknown]
  - Middle ear effusion [Unknown]
  - Deafness neurosensory [Unknown]
  - Fall [Unknown]
  - Hyperglycaemia [Unknown]
  - Endotracheal intubation complication [Unknown]
  - Hyperthermia malignant [Unknown]
  - Foot fracture [Unknown]
  - Dyskinesia [Unknown]
  - Mononeuritis [Unknown]
  - Urinary tract infection [Unknown]
  - Pseudomonas infection [Unknown]
  - Haematoma [Unknown]
  - Epistaxis [Unknown]
  - Hypogammaglobulinaemia [Unknown]
  - Thrombocytopenia [Unknown]
  - Psychotic disorder [Unknown]
  - Leukopenia [Unknown]
  - Respiratory distress [Unknown]
